FAERS Safety Report 14255258 (Version 1)
Quarter: 2017Q4

REPORT INFORMATION
  Report Type: Report from Study
  Country: US (occurrence: US)
  Receive Date: 20171206
  Receipt Date: 20171206
  Transmission Date: 20180321
  Serious: Yes (Death, Hospitalization, Other)
  Sender: FDA-Public Use
  Company Number: US-TORRENT-00004581

PATIENT
  Age: 50 Year
  Sex: Female

DRUGS (2)
  1. DILTIAZEM. [Suspect]
     Active Substance: DILTIAZEM
     Indication: PRODUCT USED FOR UNKNOWN INDICATION
     Dosage: OVERDOSE OF 14 DILTIAZEM 180 MG EXTENDED RELEASE
     Route: 048
  2. AMLODIPINE [Suspect]
     Active Substance: AMLODIPINE BESYLATE
     Indication: PRODUCT USED FOR UNKNOWN INDICATION
     Dosage: 14 AMLODIPINE
     Route: 048

REACTIONS (7)
  - Completed suicide [Fatal]
  - Bradycardia [Unknown]
  - Toxicity to various agents [Fatal]
  - Unresponsive to stimuli [Unknown]
  - Hypotension [Unknown]
  - Overdose [Fatal]
  - Hyperkalaemia [Unknown]
